FAERS Safety Report 9897997 (Version 3)
Quarter: 2014Q1

REPORT INFORMATION
  Report Type: Spontaneous
  Country: DE (occurrence: DE)
  Receive Date: 20140214
  Receipt Date: 20140303
  Transmission Date: 20141002
  Serious: Yes (Life-Threatening, Hospitalization, Other)
  Sender: FDA-Public Use
  Company Number: DE-B.I. PHARMACEUTICALS,INC./RIDGEFIELD-2014-BI-04615DE

PATIENT
  Age: 72 Year
  Sex: Female

DRUGS (14)
  1. PRADAXA [Suspect]
     Indication: ATRIAL FIBRILLATION
     Dosage: 300 MG
     Route: 065
     Dates: start: 20131224
  2. PRADAXA [Suspect]
     Indication: ATRIAL FIBRILLATION
  3. BRILIQUE 90 [Suspect]
     Indication: STENT EMBOLISATION
     Dosage: 2 ANZ
     Route: 048
     Dates: start: 20131224
  4. BETA BLOCKER [Concomitant]
     Route: 065
  5. ACE INHIBITOR [Concomitant]
     Route: 065
  6. DIURETIC [Concomitant]
     Route: 065
  7. PANTOPRAZOL [Concomitant]
     Indication: PROPHYLAXIS
     Route: 065
  8. SIMVATATIN [Concomitant]
     Indication: PROPHYLAXIS
     Route: 048
  9. DECORTIN [Concomitant]
     Indication: PROPHYLAXIS
     Dosage: 30 MG
     Route: 065
  10. BISOPROLOL [Concomitant]
     Dosage: 5 MG
     Route: 048
  11. RAMIPRIL [Concomitant]
     Route: 048
  12. SPIRIVA [Concomitant]
     Dosage: 18 MCG
     Route: 055
  13. TORASEMID [Concomitant]
     Dosage: 10 MG
     Route: 048
  14. UNACID I.V [Concomitant]
     Dosage: DOSE: 3 X 3 GR. DAILY
     Route: 042

REACTIONS (8)
  - Pulmonary haemorrhage [Not Recovered/Not Resolved]
  - Circulatory collapse [Unknown]
  - Dyspnoea [Unknown]
  - Gingival bleeding [Not Recovered/Not Resolved]
  - Dizziness [Unknown]
  - Hypotension [Unknown]
  - Atrial fibrillation [Unknown]
  - Dyspnoea [Unknown]
